FAERS Safety Report 11622853 (Version 1)
Quarter: 2015Q4

REPORT INFORMATION
  Report Type: Spontaneous
  Country: US (occurrence: US)
  Receive Date: 20151013
  Receipt Date: 20151013
  Transmission Date: 20160304
  Serious: No
  Sender: FDA-Public Use
  Company Number: US-JNJFOC-20150101252

PATIENT
  Age: 78 Year
  Sex: Male
  Weight: 63.96 kg

DRUGS (2)
  1. TYLENOL EXTRA STRENGTH [Suspect]
     Active Substance: ACETAMINOPHEN
     Indication: PAIN
     Dosage: DOSAGE - 1 CAPLET????INTERVAL - ONCE A DAY AS NEEDED
     Route: 048
     Dates: start: 20141231
  2. TYLENOL EXTRA STRENGTH [Suspect]
     Active Substance: ACETAMINOPHEN
     Indication: DISCOMFORT
     Dosage: DOSAGE - 1 CAPLET????INTERVAL - ONCE A DAY AS NEEDED
     Route: 048
     Dates: start: 20141231

REACTIONS (4)
  - Drug ineffective [Unknown]
  - Product container issue [Unknown]
  - Product package associated injury [Recovering/Resolving]
  - Product label issue [Unknown]

NARRATIVE: CASE EVENT DATE: 20141231
